FAERS Safety Report 10383940 (Version 1)
Quarter: 2014Q1

REPORT INFORMATION
  Report Type: Spontaneous
  Country: US (occurrence: None)
  Receive Date: 20140306
  Receipt Date: 20140306
  Transmission Date: 20141002
  Serious: Yes (Other)
  Sender: FDA-Public Use
  Company Number: 163-21880-13054936

PATIENT
  Age: 60 Year
  Sex: Male

DRUGS (7)
  1. REVLIMID (LENALIDOMIDE) (CAPSULES) [Suspect]
     Indication: PLASMA CELL MYELOMA
     Route: 048
     Dates: start: 20130520
  2. CENTRUM COMPLETE MULTIVITAMINS (CENTRUM) [Concomitant]
  3. DIOVAN HCT (CO-DIOVAN) [Concomitant]
  4. GABAPENTIN [Concomitant]
  5. ASPIRIN (ACETYLSALICYLIC ACID) [Concomitant]
  6. CRESTOR (ROSUVASTATIN) [Concomitant]
  7. CALCIUM+VITAMIN D+K (CALCIUM, COMBINATIONS WITH VITAMIN D AND/OR O) [Concomitant]

REACTIONS (3)
  - Cognitive disorder [None]
  - Neuropathy peripheral [None]
  - Drug ineffective [None]
